FAERS Safety Report 10182829 (Version 2)
Quarter: 2014Q2

REPORT INFORMATION
  Report Type: Spontaneous
  Country: US (occurrence: US)
  Receive Date: 20140520
  Receipt Date: 20140620
  Transmission Date: 20141212
  Serious: Yes (Other)
  Sender: FDA-Public Use
  Company Number: US-PFIZER INC-2014133939

PATIENT
  Age: 16 Year
  Sex: Male

DRUGS (1)
  1. MORPHINE SULFATE [Suspect]
     Indication: PAIN
     Dosage: UNK
     Route: 042

REACTIONS (3)
  - Drug hypersensitivity [Unknown]
  - Respiratory tract oedema [Recovered/Resolved]
  - Peripheral swelling [Recovered/Resolved]
